FAERS Safety Report 24404882 (Version 11)
Quarter: 2025Q1

REPORT INFORMATION
  Report Type: Spontaneous
  Country: US (occurrence: US)
  Receive Date: 20241007
  Receipt Date: 20250313
  Transmission Date: 20250409
  Serious: No
  Sender: PFIZER
  Company Number: US-PFIZER INC-202400267310

PATIENT
  Age: 7 Year
  Sex: Female

DRUGS (1)
  1. GENOTROPIN [Suspect]
     Active Substance: SOMATROPIN
     Dates: start: 20240831

REACTIONS (4)
  - Drug dose omission by device [Unknown]
  - Poor quality device used [Unknown]
  - Liquid product physical issue [Unknown]
  - Device leakage [Unknown]

NARRATIVE: CASE EVENT DATE: 20240901
